FAERS Safety Report 9164459 (Version 1)
Quarter: 2013Q1

REPORT INFORMATION
  Report Type: Spontaneous
  Country: US (occurrence: None)
  Receive Date: 20130221
  Receipt Date: 20130221
  Transmission Date: 20140127
  Serious: Yes (Hospitalization, Other)
  Sender: FDA-Public Use
  Company Number: CA-010902

PATIENT
  Age: 73 Year
  Sex: Male

DRUGS (8)
  1. FIRMAGON [Suspect]
     Indication: PROSTATE CANCER
     Dosage: 80 MG  1X/MONTH SUBCUTANEOUS, 8/2010 TO CONTINUING
     Route: 058
     Dates: start: 201008
  2. GLYBURDIDE [Concomitant]
  3. METFORMIN [Concomitant]
  4. CANDESARTAN [Concomitant]
  5. RISEDRONATE [Concomitant]
  6. BICALUTAMIDE [Concomitant]
  7. VOLTAREN /00372301/ [Concomitant]
  8. MORPHINE SULFATE [Concomitant]

REACTIONS (5)
  - Anaemia [None]
  - Pneumonia [None]
  - Headache [None]
  - Dizziness [None]
  - Hepatic neoplasm [None]
